FAERS Safety Report 13831503 (Version 1)
Quarter: 2017Q3

REPORT INFORMATION
  Report Type: Spontaneous
  Country: US (occurrence: US)
  Receive Date: 20170803
  Receipt Date: 20170803
  Transmission Date: 20171127
  Serious: Yes (Hospitalization)
  Sender: FDA-Public Use
  Company Number: US-BEH-2017082455

PATIENT
  Age: 66 Year
  Sex: Female
  Weight: 114.29 kg

DRUGS (44)
  1. REMERON [Concomitant]
     Active Substance: MIRTAZAPINE
  2. ASPIRIN. [Concomitant]
     Active Substance: ASPIRIN
  3. NEURONTIN [Concomitant]
     Active Substance: GABAPENTIN
  4. ROPINIROLE. [Concomitant]
     Active Substance: ROPINIROLE
  5. NASOCORT [Concomitant]
     Active Substance: BUDESONIDE
  6. HIZENTRA [Suspect]
     Active Substance: HUMAN IMMUNOGLOBULIN G
     Indication: IMMUNODEFICIENCY COMMON VARIABLE
     Dosage: 15 G, UNK
     Route: 058
     Dates: start: 20110412
  7. HIZENTRA [Suspect]
     Active Substance: HUMAN IMMUNOGLOBULIN G
     Dosage: UNK
     Route: 058
  8. SINGULAIR [Concomitant]
     Active Substance: MONTELUKAST SODIUM
  9. MAGNESIUM OXIDE. [Concomitant]
     Active Substance: MAGNESIUM OXIDE
  10. ELIQUIS [Concomitant]
     Active Substance: APIXABAN
  11. VITAMIN D3 [Concomitant]
     Active Substance: CHOLECALCIFEROL
  12. LANTUS [Concomitant]
     Active Substance: INSULIN GLARGINE
  13. VITAMINS WITH MINERALS [Concomitant]
     Active Substance: MINERALS\VITAMINS
  14. CALCIUM+D3 [Concomitant]
  15. OXYGEN. [Concomitant]
     Active Substance: OXYGEN
  16. METOPROLOL SUCCINATE. [Concomitant]
     Active Substance: METOPROLOL SUCCINATE
  17. ALBUTEROL                          /00139501/ [Concomitant]
     Active Substance: ALBUTEROL
  18. IMODIUM A-D [Concomitant]
     Active Substance: LOPERAMIDE HYDROCHLORIDE
  19. LIDODERM [Concomitant]
     Active Substance: LIDOCAINE
  20. HIZENTRA [Suspect]
     Active Substance: HUMAN IMMUNOGLOBULIN G
     Indication: MULTIPLE SCLEROSIS
     Dosage: UNK
     Route: 058
  21. DIPHENHYDRAMINE. [Concomitant]
     Active Substance: DIPHENHYDRAMINE
  22. HUMALOG [Concomitant]
     Active Substance: INSULIN LISPRO
  23. ALLI [Concomitant]
     Active Substance: ORLISTAT
  24. ATORVASTATIN [Concomitant]
     Active Substance: ATORVASTATIN
  25. BACTROBAN [Concomitant]
     Active Substance: MUPIROCIN\MUPIROCIN CALCIUM
  26. LASIX [Concomitant]
     Active Substance: FUROSEMIDE
  27. PRILOSEC [Concomitant]
     Active Substance: OMEPRAZOLE MAGNESIUM
  28. PROAIR HFA [Concomitant]
     Active Substance: ALBUTEROL SULFATE
  29. POTASSIUM [Concomitant]
     Active Substance: POTASSIUM
  30. NORMAL SALINE [Concomitant]
     Active Substance: SODIUM CHLORIDE
  31. AUGMENTIN [Concomitant]
     Active Substance: AMOXICILLIN\CLAVULANATE POTASSIUM
  32. IPRATROPIUM [Concomitant]
     Active Substance: IPRATROPIUM
  33. SYMBICORT [Concomitant]
     Active Substance: BUDESONIDE\FORMOTEROL FUMARATE DIHYDRATE
  34. VESICARE [Concomitant]
     Active Substance: SOLIFENACIN SUCCINATE
  35. HIZENTRA [Suspect]
     Active Substance: HUMAN IMMUNOGLOBULIN G
     Dosage: UNK
     Route: 058
  36. EPIPEN [Concomitant]
     Active Substance: EPINEPHRINE
  37. IRON [Concomitant]
     Active Substance: IRON
  38. MUCINEX [Concomitant]
     Active Substance: GUAIFENESIN
  39. LOSARTAN. [Concomitant]
     Active Substance: LOSARTAN
  40. TYLENOL EXTRA STRENGTH [Concomitant]
     Active Substance: ACETAMINOPHEN
  41. COPAXONE [Concomitant]
     Active Substance: GLATIRAMER ACETATE
  42. BACLOFEN. [Concomitant]
     Active Substance: BACLOFEN
  43. PATANASE [Concomitant]
     Active Substance: OLOPATADINE HYDROCHLORIDE
  44. LORATADINE. [Concomitant]
     Active Substance: LORATADINE

REACTIONS (1)
  - Atrial flutter [Recovered/Resolved]

NARRATIVE: CASE EVENT DATE: 20170628
